FAERS Safety Report 5565929-X (Version None)
Quarter: 2007Q4

REPORT INFORMATION
  Report Type: 
  Country: None (occurrence: None)
  Receive Date: 20071219
  Receipt Date: 20071211
  Transmission Date: 20080405
  Serious: Yes (Hospitalization, Other)
  Sender: FDA-Public Use
  Company Number: PHHO2006ES16116

PATIENT
  Age: 64 Year
  Sex: Female
  Weight: 75 kg

DRUGS (4)
  1. NEORAL [Suspect]
     Indication: LIVER TRANSPLANT
     Dosage: 300 MG, BID
     Route: 048
     Dates: start: 20060925
  2. NEORAL [Suspect]
     Dosage: 125 MG DAILY
     Route: 048
     Dates: start: 20061213
  3. NEORAL [Suspect]
     Dosage: 50 MG, BID
     Route: 048
  4. INTERFERON GAMMA [Suspect]

REACTIONS (23)
  - ASCITES [None]
  - ASTHENIA [None]
  - AUTOANTIBODY POSITIVE [None]
  - CHOLESTASIS [None]
  - CONCOMITANT DISEASE PROGRESSION [None]
  - DISEASE PROGRESSION [None]
  - DRUG INEFFECTIVE [None]
  - ENCEPHALOPATHY [None]
  - FIBROSIS [None]
  - GRAFT DYSFUNCTION [None]
  - HEPATITIS C [None]
  - HYPERGAMMAGLOBULINAEMIA [None]
  - HYPERGLYCAEMIA [None]
  - HYPONATRAEMIA [None]
  - LIVER TRANSPLANT REJECTION [None]
  - NAUSEA [None]
  - NECROSIS [None]
  - PANCREATITIS ACUTE [None]
  - POLYDIPSIA [None]
  - POLYURIA [None]
  - PORTAL HYPERTENSION [None]
  - RECTAL HAEMORRHAGE [None]
  - TRANSAMINASES INCREASED [None]
